FAERS Safety Report 5556255-3 (Version None)
Quarter: 2007Q4

REPORT INFORMATION
  Report Type: 
  Country: None (occurrence: None)
  Receive Date: 20071203
  Receipt Date: 20071121
  Transmission Date: 20080405
  Serious: Yes (Other)
  Sender: FDA-Public Use
  Company Number: 2007332595

PATIENT
  Sex: Female

DRUGS (3)
  1. LISTERINE (MENTHOL, METHYL SALICYLATE, EUCALYPTOL, THYMOL) [Suspect]
     Indication: DENTAL DISORDER PROPHYLAXIS
     Dosage: UNSPECIFIED ^SPORADICALLY^, ORAL
     Route: 048
  2. CALTRATE + D (CALCIUM CARBONATE, COLECALCIFEROL) [Concomitant]
  3. DRUG, UNSPECIFIED (DRUG, UNSPECIFIED) [Concomitant]

REACTIONS (3)
  - GLOSSITIS [None]
  - SPEECH DISORDER [None]
  - TONGUE OEDEMA [None]
